FAERS Safety Report 8924354 (Version 1)
Quarter: 2012Q4

REPORT INFORMATION
  Report Type: Spontaneous
  Country: US (occurrence: None)
  Receive Date: 20121121
  Receipt Date: 20121121
  Transmission Date: 20130627
  Serious: Yes (Other)
  Sender: FDA-Public Use
  Company Number: None

PATIENT
  Sex: Female

DRUGS (1)
  1. COPAXONE [Suspect]
     Indication: MS
     Dosage: 20mg   daily   sq
     Route: 058
     Dates: start: 20120710

REACTIONS (2)
  - Alopecia [None]
  - Fatigue [None]
